FAERS Safety Report 5959743-0 (Version None)
Quarter: 2008Q4

REPORT INFORMATION
  Report Type: 
  Country: None (occurrence: None)
  Receive Date: 20081119
  Receipt Date: 20081119
  Transmission Date: 20090506
  Serious: Yes (Life-Threatening)
  Sender: FDA-Public Use
  Company Number: None

PATIENT
  Age: 67 Year
  Sex: Male
  Weight: 64.6 kg

DRUGS (5)
  1. WARFARIN SODIUM [Suspect]
     Indication: ATRIAL FIBRILLATION
     Dosage: WARFARIN 10MG TUES/F/SUN  : 5MG M/W/TH/SAT
     Dates: start: 20081007, end: 20081022
  2. FUROSEMIDE [Concomitant]
  3. HEPARIN [Concomitant]
  4. METOPROLOL TARTRATE [Concomitant]
  5. POTASSIUM CHLORIDE [Concomitant]

REACTIONS (2)
  - ATRIAL THROMBOSIS [None]
  - INTERNATIONAL NORMALISED RATIO DECREASED [None]
